FAERS Safety Report 4786581-7 (Version None)
Quarter: 2005Q3

REPORT INFORMATION
  Report Type: 
  Country: None (occurrence: None)
  Receive Date: 20050927
  Receipt Date: 20050624
  Transmission Date: 20060218
  Serious: No
  Sender: FDA-Public Use
  Company Number: USA050699791

PATIENT
  Age: 15 Year
  Sex: Female

DRUGS (1)
  1. STRATTERA [Suspect]
     Indication: ATTENTION DEFICIT/HYPERACTIVITY DISORDER
     Dosage: 60 MG
     Dates: start: 20041204, end: 20050602

REACTIONS (3)
  - AMENORRHOEA [None]
  - CONSTIPATION [None]
  - DECREASED APPETITE [None]
